FAERS Safety Report 8851174 (Version 1)
Quarter: 2012Q4

REPORT INFORMATION
  Report Type: 
  Country: US (occurrence: US)
  Receive Date: 20121019
  Receipt Date: 20121019
  Transmission Date: 20130627
  Serious: No
  Sender: FDA-Public Use
  Company Number: US-BRISTOL-MYERS SQUIBB COMPANY-16770034

PATIENT
  Age: 61 Year
  Sex: Male

DRUGS (2)
  1. YERVOY [Suspect]
     Dosage: 3 dase:12Jul12
     Route: 042
  2. AMBIEN [Concomitant]
     Indication: INSOMNIA

REACTIONS (3)
  - Arthralgia [Unknown]
  - Insomnia [Unknown]
  - Decreased appetite [Unknown]
